FAERS Safety Report 10049631 (Version 1)
Quarter: 2014Q2

REPORT INFORMATION
  Report Type: Spontaneous
  Country: NL (occurrence: NL)
  Receive Date: 20140401
  Receipt Date: 20140401
  Transmission Date: 20141212
  Serious: Yes (Death)
  Sender: FDA-Public Use
  Company Number: NL-ROCHE-1368987

PATIENT
  Age: 55 Year
  Sex: Male
  Weight: 78 kg

DRUGS (2)
  1. CELLCEPT [Suspect]
     Indication: IMMUNOSUPPRESSION
     Route: 048
     Dates: start: 20120529
  2. TACROLIMUS [Suspect]
     Indication: IMMUNOSUPPRESSION
     Route: 048
     Dates: start: 20120529

REACTIONS (1)
  - Cardiac arrest [Fatal]
